FAERS Safety Report 18590587 (Version 1)
Quarter: 2020Q4

REPORT INFORMATION
  Report Type: Spontaneous
  Country: US (occurrence: US)
  Receive Date: 20201208
  Receipt Date: 20201208
  Transmission Date: 20210114
  Serious: No
  Sender: FDA-Public Use
  Company Number: None

PATIENT
  Age: 78 Year
  Sex: Male
  Weight: 74.25 kg

DRUGS (18)
  1. FINASTERIDE. [Concomitant]
     Active Substance: FINASTERIDE
  2. OXYBUTYNIN CHLORIDE. [Concomitant]
     Active Substance: OXYBUTYNIN CHLORIDE
  3. CYCLOPHOSPHAMIDE. [Suspect]
     Active Substance: CYCLOPHOSPHAMIDE
     Indication: PLASMA CELL MYELOMA
     Dosage: ?          OTHER FREQUENCY:ONCE A WEEK;?
     Route: 048
     Dates: start: 20200804, end: 20201208
  4. LOTEMAX [Concomitant]
     Active Substance: LOTEPREDNOL ETABONATE
  5. SPIRIVA [Concomitant]
     Active Substance: TIOTROPIUM BROMIDE MONOHYDRATE
  6. PANTOPRAZOLE SODIUM. [Concomitant]
     Active Substance: PANTOPRAZOLE SODIUM
  7. OXYCODONE HYDROCHLORIDE. [Concomitant]
     Active Substance: OXYCODONE HYDROCHLORIDE
  8. TYLENOL EXTRA STRENGTH [Concomitant]
     Active Substance: ACETAMINOPHEN
  9. PREDNISOLONE SODIUM PHOSPHATE. [Concomitant]
     Active Substance: PREDNISOLONE SODIUM PHOSPHATE
  10. ACYCLOVIR. [Concomitant]
     Active Substance: ACYCLOVIR
  11. LORAZEPAM. [Concomitant]
     Active Substance: LORAZEPAM
  12. MORPHINE SULFATE ER [Concomitant]
     Active Substance: MORPHINE SULFATE
  13. ATOVAQUONE. [Concomitant]
     Active Substance: ATOVAQUONE
  14. TAMSULOSIN HCL [Concomitant]
     Active Substance: TAMSULOSIN HYDROCHLORIDE
  15. ZOLEDRONIC ACID [Concomitant]
     Active Substance: ZOLEDRONIC ACID
  16. VITAMIN D [Concomitant]
     Active Substance: VITAMIN D NOS
  17. FUROSEMIDE. [Concomitant]
     Active Substance: FUROSEMIDE
  18. SALINE NASAL SPRAY [Concomitant]
     Active Substance: SODIUM CHLORIDE

REACTIONS (2)
  - Thrombocytopenia [None]
  - Fatigue [None]

NARRATIVE: CASE EVENT DATE: 20201208
